FAERS Safety Report 7762885-0 (Version None)
Quarter: 2011Q3

REPORT INFORMATION
  Report Type: 
  Country: None (occurrence: None)
  Receive Date: 20110920
  Receipt Date: 20110912
  Transmission Date: 20111222
  Serious: Yes (Hospitalization)
  Sender: FDA-Public Use
  Company Number: JP-B.I. PHARMACEUTICALS,INC./RIDGEFIELD-2011-BP-22092NB

PATIENT
  Age: 82 Year
  Sex: Female

DRUGS (4)
  1. CANDESARTAN CILEXETIL [Concomitant]
     Indication: HYPERTENSION
     Dosage: 4 MG
     Route: 048
     Dates: start: 20110730
  2. PRADAXA [Suspect]
     Dosage: 220 MG
     Route: 048
     Dates: start: 20110730, end: 20110823
  3. VERAPAMIL HCL [Concomitant]
     Indication: HEART RATE
     Dosage: 120 MG
     Route: 048
     Dates: start: 20110730
  4. ASPIRIN [Concomitant]
     Dosage: 100 MG
     Route: 048
     Dates: start: 20110730

REACTIONS (4)
  - DUODENAL ULCER [None]
  - SHOCK [None]
  - MELAENA [None]
  - GASTRIC MUCOSAL LESION [None]
